FAERS Safety Report 18289239 (Version 5)
Quarter: 2022Q1

REPORT INFORMATION
  Report Type: Spontaneous
  Country: US (occurrence: US)
  Receive Date: 20200921
  Receipt Date: 20220223
  Transmission Date: 20220423
  Serious: No
  Sender: FDA-Public Use
  Company Number: US-AMGEN-USASP2020152289

PATIENT
  Age: 68 Year
  Sex: Female
  Weight: 80.726 kg

DRUGS (2)
  1. AIMOVIG [Suspect]
     Active Substance: ERENUMAB-AOOE
     Indication: Migraine prophylaxis
     Dosage: 140 MILLIGRAM, QMO
     Route: 065
     Dates: start: 2019
  2. AIMOVIG [Suspect]
     Active Substance: ERENUMAB-AOOE
     Dosage: 140 MILLIGRAM
     Route: 065

REACTIONS (6)
  - Accidental exposure to product [Unknown]
  - Underdose [Unknown]
  - Device difficult to use [Unknown]
  - Injection site injury [Unknown]
  - Injection site mass [Unknown]
  - Injection site pain [Unknown]

NARRATIVE: CASE EVENT DATE: 20200916
